FAERS Safety Report 17015191 (Version 1)
Quarter: 2019Q4

REPORT INFORMATION
  Report Type: Spontaneous
  Country: US (occurrence: US)
  Receive Date: 20191108
  Receipt Date: 20191108
  Transmission Date: 20200122
  Serious: No
  Sender: FDA-Public Use
  Company Number: None

PATIENT
  Age: 58 Year
  Sex: Male

DRUGS (2)
  1. METOPROLOL ER SUCCINATE 50MG TAB [Concomitant]
     Dates: start: 20191017, end: 20191108
  2. METROPROLOL ER SUCCINATE 50MG TAB, NDC: 68382-0565-01, MFG ZYDUS [Suspect]
     Active Substance: METOPROLOL SUCCINATE

REACTIONS (3)
  - Blood pressure increased [None]
  - Drug ineffective [None]
  - Heart rate increased [None]

NARRATIVE: CASE EVENT DATE: 20191108
